FAERS Safety Report 9390368 (Version 3)
Quarter: 2013Q4

REPORT INFORMATION
  Report Type: Spontaneous
  Country: US (occurrence: US)
  Receive Date: 20130709
  Receipt Date: 20131022
  Transmission Date: 20140711
  Serious: Yes (Other)
  Sender: FDA-Public Use
  Company Number: US-BRISTOL-MYERS SQUIBB COMPANY-19082981

PATIENT
  Age: 80 Year
  Sex: Female
  Weight: 69.84 kg

DRUGS (2)
  1. ELIQUIS [Suspect]
     Indication: ATRIAL FIBRILLATION
     Dosage: 2PER 1 WEK
     Route: 048
     Dates: start: 20130627
  2. ELIQUIS [Suspect]
     Indication: CEREBROVASCULAR ACCIDENT
     Dosage: 2PER 1 WEK
     Route: 048
     Dates: start: 20130627

REACTIONS (5)
  - International normalised ratio decreased [Unknown]
  - Blood pressure diastolic increased [Unknown]
  - International normalised ratio increased [Unknown]
  - Drug dose omission [Unknown]
  - Drug ineffective [Unknown]
